FAERS Safety Report 15269659 (Version 1)
Quarter: 2018Q3

REPORT INFORMATION
  Report Type: Spontaneous
  Country: None (occurrence: US)
  Receive Date: 20180813
  Receipt Date: 20180813
  Transmission Date: 20181010
  Serious: Yes (Life-Threatening, Hospitalization, Other)
  Sender: FDA-Public Use
  Company Number: US-ORION CORPORATION ORION PHARMA-18_00004149

PATIENT
  Age: 76 Year
  Sex: Female

DRUGS (3)
  1. ABATACEPT [Suspect]
     Active Substance: ABATACEPT
     Indication: RHEUMATOID ARTHRITIS
     Route: 065
  2. METHOTREXATE. [Suspect]
     Active Substance: METHOTREXATE
     Indication: RHEUMATOID ARTHRITIS
     Route: 065
  3. OXYGEN. [Concomitant]
     Active Substance: OXYGEN
     Indication: CHRONIC OBSTRUCTIVE PULMONARY DISEASE
     Route: 065

REACTIONS (4)
  - Sinus node dysfunction [Unknown]
  - Lung squamous cell carcinoma stage I [Unknown]
  - Immunosuppression [Unknown]
  - Pulmonary nocardiosis [Unknown]
